FAERS Safety Report 4281637-X (Version None)
Quarter: 2004Q1

REPORT INFORMATION
  Report Type: 
  Country: None (occurrence: None)
  Receive Date: 20040120
  Receipt Date: 20031028
  Transmission Date: 20041129
  Serious: No
  Sender: FDA-Public Use
  Company Number: 2003-10-3495

PATIENT
  Sex: Male

DRUGS (2)
  1. CLARINEX [Suspect]
     Dosage: 5MG ORAL
     Route: 048
  2. VIAGRA [Suspect]

REACTIONS (1)
  - DRUG INTERACTION [None]
